FAERS Safety Report 6314898-3 (Version None)
Quarter: 2009Q3

REPORT INFORMATION
  Report Type: 
  Country: None (occurrence: None)
  Receive Date: 20090819
  Receipt Date: 20090812
  Transmission Date: 20100115
  Serious: Yes (Other)
  Sender: FDA-Public Use
  Company Number: B0588986A

PATIENT
  Sex: Male

DRUGS (1)
  1. ALLI [Suspect]
     Dosage: 3CAP PER DAY
     Route: 065

REACTIONS (1)
  - RECTAL HAEMORRHAGE [None]
